FAERS Safety Report 21155819 (Version 2)
Quarter: 2022Q3

REPORT INFORMATION
  Report Type: Spontaneous
  Country: US (occurrence: US)
  Receive Date: 20220801
  Receipt Date: 20220816
  Transmission Date: 20221026
  Serious: No
  Sender: FDA-Public Use
  Company Number: US-AcelRx Pharmaceuticals, Inc-ACEL20220193

PATIENT
  Age: 70 Year
  Sex: Female
  Weight: 57.3 kg

DRUGS (2)
  1. DSUVIA [Suspect]
     Active Substance: SUFENTANIL
     Indication: Procedural pain
     Dosage: UNKNOWN
     Route: 060
     Dates: start: 20220720, end: 20220720
  2. VITAMINS [Concomitant]
     Active Substance: VITAMINS
     Indication: Product used for unknown indication
     Dosage: 1 TABLET
     Route: 048
     Dates: start: 20210214, end: 20220720

REACTIONS (2)
  - Discomfort [Recovered/Resolved]
  - Drug effect less than expected [Recovered/Resolved]

NARRATIVE: CASE EVENT DATE: 20220720
